FAERS Safety Report 10404102 (Version 1)
Quarter: 2014Q1

REPORT INFORMATION
  Report Type: Spontaneous
  Country: US (occurrence: None)
  Receive Date: 20130815
  Receipt Date: 20130815
  Transmission Date: 20141002
  Serious: Yes (Other)
  Sender: FDA-Public Use
  Company Number: ADR-2013-00146

PATIENT
  Sex: Male

DRUGS (2)
  1. BACLOFEN INTRATHECAL [Suspect]
     Indication: BACK PAIN
     Dosage: UNKNOWN DOSAGE
     Route: 037
  2. CLONIDINE AND MORPHINE, INTRATHECAL [Concomitant]

REACTIONS (2)
  - Pain [None]
  - Therapeutic response decreased [None]
